FAERS Safety Report 10931615 (Version 1)
Quarter: 2015Q1

REPORT INFORMATION
  Report Type: Report from Study
  Country: US (occurrence: US)
  Receive Date: 20150319
  Receipt Date: 20150319
  Transmission Date: 20150721
  Serious: Yes (Death)
  Sender: FDA-Public Use
  Company Number: US-GILEAD-2015-0142743

PATIENT
  Age: 70 Year
  Sex: Female

DRUGS (6)
  1. WARFARIN [Concomitant]
     Active Substance: WARFARIN
  2. AMBRISENTAN [Suspect]
     Active Substance: AMBRISENTAN
     Indication: PULMONARY HYPERTENSION
     Dosage: 10 MG, QD
     Route: 065
     Dates: start: 20140827, end: 20150303
  3. PROLENSA [Concomitant]
     Active Substance: BROMFENAC SODIUM
  4. LUMIGAN [Concomitant]
     Active Substance: BIMATOPROST
  5. ILEVRO [Concomitant]
     Active Substance: NEPAFENAC
  6. ADCIRCA [Concomitant]
     Active Substance: TADALAFIL

REACTIONS (2)
  - Lung disorder [Fatal]
  - Cardiac disorder [Fatal]
